FAERS Safety Report 10428147 (Version 1)
Quarter: 2014Q3

REPORT INFORMATION
  Report Type: Report from Study
  Country: DE (occurrence: DE)
  Receive Date: 20140903
  Receipt Date: 20140903
  Transmission Date: 20150326
  Serious: Yes (Congenital Anomaly, Other)
  Sender: FDA-Public Use
  Company Number: DE-PFIZER INC-2014240869

PATIENT

DRUGS (3)
  1. AMBROXOL [Suspect]
     Active Substance: AMBROXOL
     Dosage: UNK
     Route: 064
  2. CIPROFLOXACIN. [Suspect]
     Active Substance: CIPROFLOXACIN
     Dosage: 500 MG, 2X/DAY
     Route: 064
  3. DOXYCYCLINE HYCLATE. [Suspect]
     Active Substance: DOXYCYCLINE HYCLATE
     Dosage: UNK
     Route: 064

REACTIONS (2)
  - Gastroschisis [Unknown]
  - Maternal exposure during pregnancy [Unknown]
